FAERS Safety Report 23475782 (Version 1)
Quarter: 2024Q1

REPORT INFORMATION
  Report Type: Report from Study
  Country: US (occurrence: US)
  Receive Date: 20240204
  Receipt Date: 20240204
  Transmission Date: 20240410
  Serious: No
  Sender: FDA-Public Use
  Company Number: US-EXELIXIS-CABO-23060758

PATIENT
  Sex: Male

DRUGS (2)
  1. CABOMETYX [Suspect]
     Active Substance: CABOZANTINIB S-MALATE
     Indication: Illness
     Dosage: 40 MG, QD
     Route: 048
     Dates: start: 202301
  2. CABOMETYX [Suspect]
     Active Substance: CABOZANTINIB S-MALATE
     Dosage: 20 MG, QD
     Route: 048

REACTIONS (7)
  - Arrhythmia [Recovered/Resolved]
  - Abdominal discomfort [Unknown]
  - Balance disorder [Unknown]
  - Tremor [Unknown]
  - Tumour haemorrhage [Recovered/Resolved]
  - Diarrhoea [Unknown]
  - Vomiting [Unknown]
